FAERS Safety Report 6315720-1 (Version None)
Quarter: 2009Q3

REPORT INFORMATION
  Report Type: 
  Country: None (occurrence: None)
  Receive Date: 20090818
  Receipt Date: 20090803
  Transmission Date: 20100115
  Serious: Yes (Other)
  Sender: FDA-Public Use
  Company Number: 238647K09USA

PATIENT
  Age: 46 Year
  Sex: Male
  Weight: 69 kg

DRUGS (4)
  1. REBIF [Suspect]
     Indication: MULTIPLE SCLEROSIS
     Dosage: 44 MCG, 3 IN 1 WEEKS,  SUBCUTANEOUS
     Route: 058
     Dates: start: 20081006
  2. INSULIN PUMP (INSULIN) [Concomitant]
  3. FOSAMAX [Concomitant]
  4. PROVIGIL [Concomitant]

REACTIONS (1)
  - HYPOGLYCAEMIA [None]
